FAERS Safety Report 17659417 (Version 1)
Quarter: 2020Q2

REPORT INFORMATION
  Report Type: Spontaneous
  Country: US (occurrence: US)
  Receive Date: 20200413
  Receipt Date: 20200413
  Transmission Date: 20200713
  Serious: No
  Sender: FDA-Public Use
  Company Number: US-BION-008152

PATIENT
  Age: 74 Year
  Sex: Female
  Weight: 76 kg

DRUGS (2)
  1. BAYER ASPIRIN [Concomitant]
     Active Substance: ASPIRIN
     Dosage: STRENGTH: 81 MG
  2. ALEVE [Suspect]
     Active Substance: NAPROXEN SODIUM
     Indication: PAIN
     Dosage: INSTEAD OF 20 LIQUID GELS, THERE WERE ACTUALLY 40 TABLETS IN BOTTLE.?1 TABLET
     Route: 048
     Dates: start: 20190719, end: 20190719

REACTIONS (2)
  - Product packaging issue [Unknown]
  - Incorrect product dosage form administered [Not Recovered/Not Resolved]

NARRATIVE: CASE EVENT DATE: 20190719
